FAERS Safety Report 9891707 (Version 1)
Quarter: 2014Q1

REPORT INFORMATION
  Report Type: Spontaneous
  Country: FR (occurrence: FR)
  Receive Date: 20140212
  Receipt Date: 20140212
  Transmission Date: 20141002
  Serious: Yes (Life-Threatening, Hospitalization, Other)
  Sender: FDA-Public Use
  Company Number: FR-PFIZER INC-2014037074

PATIENT
  Age: 31 Year
  Sex: Female

DRUGS (5)
  1. INIPOMP [Suspect]
     Dosage: UNK
     Route: 048
     Dates: start: 20071111, end: 20071111
  2. BIPROFENID [Suspect]
     Indication: NECK PAIN
     Dosage: 150 MG, UNK
     Route: 048
     Dates: start: 20071111, end: 20071111
  3. VOLTAREN EMULGEL [Suspect]
     Indication: NECK PAIN
     Dosage: UNK
     Route: 003
     Dates: start: 20071111, end: 20071111
  4. PANOS [Suspect]
     Dosage: 50 MG, UNK
     Route: 048
     Dates: start: 20071111, end: 20071111
  5. EFFERALGAN [Suspect]
     Dosage: UNK
     Route: 065
     Dates: start: 20071111, end: 20071111

REACTIONS (5)
  - Skin bacterial infection [Recovered/Resolved with Sequelae]
  - Cellulitis [Recovered/Resolved with Sequelae]
  - Circulatory collapse [Unknown]
  - Tachycardia [Unknown]
  - Renal failure [Unknown]
